FAERS Safety Report 17555719 (Version 1)
Quarter: 2020Q1

REPORT INFORMATION
  Report Type: Spontaneous
  Country: GB (occurrence: GB)
  Receive Date: 20200318
  Receipt Date: 20200318
  Transmission Date: 20200409
  Serious: Yes (Hospitalization, Other)
  Sender: FDA-Public Use
  Company Number: GB-PFIZER INC-2020112129

PATIENT
  Age: 87 Year
  Sex: Male

DRUGS (7)
  1. IBUPROFEN. [Suspect]
     Active Substance: IBUPROFEN
     Indication: ARTHRALGIA
     Dosage: 400MG, THREE TIMES DAILY AS NEEDED
     Route: 048
     Dates: start: 20190809
  2. DIGOXIN. [Concomitant]
     Active Substance: DIGOXIN
     Dosage: 125 UG, DAILY (MORNING)
  3. CLOPIDOGREL [Concomitant]
     Active Substance: CLOPIDOGREL BISULFATE
     Dosage: 75 MG, 1X/DAY
  4. LANSOPRAZOLE. [Concomitant]
     Active Substance: LANSOPRAZOLE
     Dosage: 30 MG, DAILY
  5. ORAMORPH SR SUSTAINED RELEASE [Suspect]
     Active Substance: MORPHINE SULFATE
     Dosage: UNK, AS NEEDED
     Dates: start: 20190821, end: 2019
  6. ZOMORPH [Suspect]
     Active Substance: MORPHINE SULFATE
     Dosage: 30 MG, 1X/DAY
     Route: 048
     Dates: start: 20190821, end: 20190827
  7. CETIRIZINE [Concomitant]
     Active Substance: CETIRIZINE HYDROCHLORIDE
     Dosage: 10 MG, DAILY

REACTIONS (3)
  - Acute kidney injury [Recovered/Resolved]
  - Mental impairment [Unknown]
  - Confusional state [Recovered/Resolved]

NARRATIVE: CASE EVENT DATE: 2019
